FAERS Safety Report 7408335-5 (Version None)
Quarter: 2011Q2

REPORT INFORMATION
  Report Type: 
  Country: None (occurrence: None)
  Receive Date: 20110412
  Receipt Date: 20110401
  Transmission Date: 20111010
  Serious: Yes (Other)
  Sender: FDA-Public Use
  Company Number: GB-JNJFOC-20110401945

PATIENT
  Sex: Male

DRUGS (1)
  1. NICORETTE NASAL SPRAY [Suspect]
     Indication: SMOKING CESSATION THERAPY
     Route: 045

REACTIONS (2)
  - DEPENDENCE [None]
  - INTENTIONAL DRUG MISUSE [None]
